FAERS Safety Report 8328613-5 (Version None)
Quarter: 2012Q2

REPORT INFORMATION
  Report Type: 
  Country: None (occurrence: None)
  Receive Date: 20120502
  Receipt Date: 20100804
  Transmission Date: 20120825
  Serious: No
  Sender: FDA-Public Use
  Company Number: US-TEVA-2010004081

PATIENT
  Sex: Female
  Weight: 51.756 kg

DRUGS (3)
  1. NUVIGIL [Suspect]
     Indication: FATIGUE
     Dosage: 150 MILLIGRAM;
     Route: 048
     Dates: start: 20100714, end: 20100719
  2. ESTRADIOL [Concomitant]
     Dates: start: 20060101
  3. WELLBUTRIN [Concomitant]
     Dates: start: 20090801

REACTIONS (2)
  - HEART RATE INCREASED [None]
  - BLOOD PRESSURE INCREASED [None]
